FAERS Safety Report 14995476 (Version 2)
Quarter: 2018Q4

REPORT INFORMATION
  Report Type: Spontaneous
  Country: US (occurrence: US)
  Receive Date: 20180611
  Receipt Date: 20181129
  Transmission Date: 20190204
  Serious: No
  Sender: FDA-Public Use
  Company Number: US-SA-2018SA153379

PATIENT
  Age: 49 Year
  Sex: Female

DRUGS (1)
  1. AUBAGIO [Suspect]
     Active Substance: TERIFLUNOMIDE
     Dosage: UNK, UNK
     Route: 048

REACTIONS (1)
  - Headache [Unknown]

NARRATIVE: CASE EVENT DATE: 20180315
